FAERS Safety Report 24242034 (Version 2)
Quarter: 2024Q3

REPORT INFORMATION
  Report Type: Spontaneous
  Country: US (occurrence: US)
  Receive Date: 20240823
  Receipt Date: 20240926
  Transmission Date: 20241017
  Serious: Yes (Hospitalization)
  Sender: AUROBINDO
  Company Number: US-AUROBINDO-AUR-APL-2024-040959

PATIENT
  Sex: Female
  Weight: 22 kg

DRUGS (3)
  1. ALBUTEROL [Suspect]
     Active Substance: ALBUTEROL
     Indication: Bronchospasm
     Dosage: UNK (NEBULISED)
     Route: 065
  2. TERBUTALINE [Suspect]
     Active Substance: TERBUTALINE
     Indication: Dyspnoea
     Dosage: 220 MICROGRAM, (10 MCG/KG)
     Route: 042
  3. TERBUTALINE [Suspect]
     Active Substance: TERBUTALINE
     Dosage: 10000 MICROGRAM,(454.5 MCG/KG)
     Route: 042

REACTIONS (1)
  - Drug ineffective [Unknown]
